FAERS Safety Report 5020742-7 (Version None)
Quarter: 2006Q2

REPORT INFORMATION
  Report Type: 
  Country: None (occurrence: None)
  Receive Date: 20060601
  Receipt Date: 20060518
  Transmission Date: 20061013
  Serious: Yes (Hospitalization)
  Sender: FDA-Public Use
  Company Number: 2006MP000730

PATIENT
  Age: 70 Year
  Sex: Female

DRUGS (3)
  1. GLIADEL [Suspect]
     Indication: OLIGODENDROGLIOMA
     Dosage: 61.6 MG;X1;ICER
     Dates: start: 20060124, end: 20060124
  2. SOLUPRED [Concomitant]
  3. AUGMENTIN '125' [Concomitant]

REACTIONS (3)
  - BRAIN ABSCESS [None]
  - EXTRADURAL ABSCESS [None]
  - PARTIAL SEIZURES [None]
